FAERS Safety Report 4742397-9 (Version None)
Quarter: 2005Q3

REPORT INFORMATION
  Report Type: 
  Country: None (occurrence: None)
  Receive Date: 20050808
  Receipt Date: 20050726
  Transmission Date: 20060218
  Serious: Yes (Other)
  Sender: FDA-Public Use
  Company Number: 2005101425

PATIENT
  Sex: Male

DRUGS (1)
  1. VIAGRA [Suspect]
     Indication: ILL-DEFINED DISORDER

REACTIONS (4)
  - BLINDNESS [None]
  - CYANOPSIA [None]
  - OPTIC NEUROPATHY [None]
  - VISUAL FIELD DEFECT [None]
